FAERS Safety Report 8076320-9 (Version None)
Quarter: 2012Q1

REPORT INFORMATION
  Report Type: 
  Country: None (occurrence: None)
  Receive Date: 20120127
  Receipt Date: 20120111
  Transmission Date: 20120608
  Serious: No
  Sender: FDA-Public Use
  Company Number: US-ROXANE LABORATORIES, INC.-2012-RO-00456RO

PATIENT
  Age: 82 Year
  Sex: Female

DRUGS (3)
  1. LEVEMIR [Suspect]
  2. NOVOLOG [Suspect]
  3. PREDNISONE TAB [Suspect]

REACTIONS (1)
  - BLOOD GLUCOSE INCREASED [None]
